FAERS Safety Report 8734712 (Version 2)
Quarter: 2012Q4

REPORT INFORMATION
  Report Type: 
  Country: IN (occurrence: IN)
  Receive Date: 20120821
  Receipt Date: 20120917
  Transmission Date: 20130627
  Serious: Yes (Other)
  Sender: FDA-Public Use
  Company Number: PHHY2012IN071516

PATIENT
  Age: 55 Year
  Sex: Male

DRUGS (1)
  1. RASILEZ [Suspect]
     Indication: CARDIAC FAILURE
     Dosage: 150 mg,
     Dates: start: 2010, end: 2011

REACTIONS (2)
  - Diabetes mellitus [Unknown]
  - Blood pressure fluctuation [Recovered/Resolved]
